FAERS Safety Report 13532352 (Version 2)
Quarter: 2017Q2

REPORT INFORMATION
  Report Type: Spontaneous
  Country: JP (occurrence: JP)
  Receive Date: 20170510
  Receipt Date: 20170523
  Transmission Date: 20170830
  Serious: Yes (Hospitalization, Other)
  Sender: FDA-Public Use
  Company Number: JP-PFIZER INC-2017201913

PATIENT
  Age: 73 Year
  Sex: Female

DRUGS (1)
  1. LIPITOR [Suspect]
     Active Substance: ATORVASTATIN CALCIUM
     Indication: HYPERCHOLESTEROLAEMIA
     Dosage: 5 MG, 1X/DAY
     Route: 048
     Dates: start: 20150130, end: 20170429

REACTIONS (3)
  - Hepatic function abnormal [Unknown]
  - Blood creatine phosphokinase increased [Recovering/Resolving]
  - Nephritis [Recovered/Resolved]

NARRATIVE: CASE EVENT DATE: 2017
